FAERS Safety Report 4608924-7 (Version None)
Quarter: 2005Q1

REPORT INFORMATION
  Report Type: 
  Country: None (occurrence: None)
  Receive Date: 20050315
  Receipt Date: 20050209
  Transmission Date: 20050727
  Serious: Yes (Other)
  Sender: FDA-Public Use
  Company Number: US-NOVOPROD-242188

PATIENT
  Age: 52 Year
  Sex: Male
  Weight: 74 kg

DRUGS (5)
  1. NORDITROPIN CARTRIDGES [Suspect]
     Indication: HYPOPITUITARISM
     Dosage: .8 MG, QD
     Route: 058
     Dates: start: 20050101, end: 20050130
  2. NORDITROPIN CARTRIDGES [Suspect]
     Route: 058
     Dates: start: 20050205
  3. RIFAMPIN [Concomitant]
     Indication: TUBERCULOSIS
     Route: 048
     Dates: start: 20050201
  4. BIAXIN [Concomitant]
     Indication: ILL-DEFINED DISORDER
     Route: 048
     Dates: start: 20050201
  5. AMPHOTERICIN B [Concomitant]
     Indication: FUNGAL INFECTION
     Route: 042
     Dates: start: 20050201

REACTIONS (2)
  - MEDICATION ERROR [None]
  - PLATELET COUNT DECREASED [None]
